FAERS Safety Report 18236238 (Version 1)
Quarter: 2020Q3

REPORT INFORMATION
  Report Type: Spontaneous
  Country: CA (occurrence: CA)
  Receive Date: 20200906
  Receipt Date: 20200906
  Transmission Date: 20201103
  Serious: Yes (Other)
  Sender: FDA-Public Use
  Company Number: CA-ASTRAZENECA-2020SF11852

PATIENT
  Age: 51 Year
  Sex: Female

DRUGS (19)
  1. ROSUVASTATIN CALCIUM. [Suspect]
     Active Substance: ROSUVASTATIN CALCIUM
     Indication: XANTHOMA
     Dosage: 10.0MG UNKNOWN
     Route: 048
  2. PRAVASTATIN SODIUM. [Suspect]
     Active Substance: PRAVASTATIN SODIUM
     Indication: TYPE IIA HYPERLIPIDAEMIA
     Dosage: 10.0MG UNKNOWN
     Route: 065
  3. ROSUVASTATIN CALCIUM. [Suspect]
     Active Substance: ROSUVASTATIN CALCIUM
     Indication: TYPE IIA HYPERLIPIDAEMIA
     Dosage: 10.0MG UNKNOWN
     Route: 048
  4. EVOLOCUMAB [Suspect]
     Active Substance: EVOLOCUMAB
     Indication: TYPE IIA HYPERLIPIDAEMIA
     Dosage: 140.0MG UNKNOWN
     Route: 058
  5. LODALIS FILM?COATED TABLETS [Suspect]
     Active Substance: COLESEVELAM HYDROCHLORIDE
     Indication: XANTHOMA
     Route: 065
  6. LODALIS FILM?COATED TABLETS [Suspect]
     Active Substance: COLESEVELAM HYDROCHLORIDE
     Indication: TYPE IIA HYPERLIPIDAEMIA
     Route: 065
  7. ATORVASTATIN CALCIUM. [Suspect]
     Active Substance: ATORVASTATIN CALCIUM
     Indication: XANTHOMA
     Route: 065
  8. EZETIMIBE. [Suspect]
     Active Substance: EZETIMIBE
     Indication: TYPE IIA HYPERLIPIDAEMIA
     Route: 065
  9. ROSUVASTATIN. [Suspect]
     Active Substance: ROSUVASTATIN
     Indication: TYPE IIA HYPERLIPIDAEMIA
     Dosage: 10.0MG UNKNOWN
     Route: 048
  10. EZETIMIBE. [Suspect]
     Active Substance: EZETIMIBE
     Indication: TYPE IIA HYPERLIPIDAEMIA
     Dosage: 10.0MG UNKNOWN
     Route: 065
  11. PRAVASTATIN. [Suspect]
     Active Substance: PRAVASTATIN
     Indication: TYPE IIA HYPERLIPIDAEMIA
  12. ATORVASTATIN CALCIUM. [Suspect]
     Active Substance: ATORVASTATIN CALCIUM
     Indication: XANTHOMA
     Route: 065
  13. EZETIMIBE. [Suspect]
     Active Substance: EZETIMIBE
     Indication: XANTHOMA
     Route: 065
  14. ATORVASTATIN CALCIUM. [Suspect]
     Active Substance: ATORVASTATIN CALCIUM
     Indication: TYPE IIA HYPERLIPIDAEMIA
     Route: 065
  15. EVOLOCUMAB [Suspect]
     Active Substance: EVOLOCUMAB
     Indication: XANTHOMA
     Dosage: 140.0MG UNKNOWN
     Route: 058
  16. EZETIMIBE. [Suspect]
     Active Substance: EZETIMIBE
     Indication: XANTHOMA
     Dosage: 10.0MG UNKNOWN
     Route: 065
  17. PRAVASTATIN. [Suspect]
     Active Substance: PRAVASTATIN
     Indication: XANTHOMA
  18. ATORVASTATIN CALCIUM. [Suspect]
     Active Substance: ATORVASTATIN CALCIUM
     Indication: TYPE IIA HYPERLIPIDAEMIA
     Route: 065
  19. REPATHA [Suspect]
     Active Substance: EVOLOCUMAB
     Indication: TYPE IIA HYPERLIPIDAEMIA
     Route: 058

REACTIONS (2)
  - Drug intolerance [Unknown]
  - Drug ineffective [Unknown]
